FAERS Safety Report 23669929 (Version 1)
Quarter: 2024Q1

REPORT INFORMATION
  Report Type: Other
  Country: TR (occurrence: None)
  Receive Date: 20240325
  Receipt Date: 20240325
  Transmission Date: 20240409
  Serious: Yes (Other)
  Sender: FDA-Public Use
  Company Number: TR-ROCHE-3530297

PATIENT

DRUGS (150)
  1. RITUXIMAB [Suspect]
     Active Substance: RITUXIMAB
     Indication: Juvenile idiopathic arthritis
     Route: 065
  2. RITUXIMAB [Suspect]
     Active Substance: RITUXIMAB
     Indication: Familial mediterranean fever
  3. RITUXIMAB [Suspect]
     Active Substance: RITUXIMAB
     Indication: Uveitis
  4. RITUXIMAB [Suspect]
     Active Substance: RITUXIMAB
     Indication: Behcet^s syndrome
  5. RITUXIMAB [Suspect]
     Active Substance: RITUXIMAB
     Indication: Systemic lupus erythematosus
  6. RITUXIMAB [Suspect]
     Active Substance: RITUXIMAB
     Indication: Hyper IgD syndrome
  7. RITUXIMAB [Suspect]
     Active Substance: RITUXIMAB
     Indication: Dermatomyositis
  8. RITUXIMAB [Suspect]
     Active Substance: RITUXIMAB
     Indication: Chronic infantile neurological cutaneous and articular syndrome
  9. RITUXIMAB [Suspect]
     Active Substance: RITUXIMAB
     Indication: Chronic recurrent multifocal osteomyelitis
  10. RITUXIMAB [Suspect]
     Active Substance: RITUXIMAB
     Indication: Familial cold autoinflammatory syndrome
  11. RITUXIMAB [Suspect]
     Active Substance: RITUXIMAB
     Indication: Arthritis enteropathic
  12. RITUXIMAB [Suspect]
     Active Substance: RITUXIMAB
     Indication: Polyarteritis nodosa
  13. RITUXIMAB [Suspect]
     Active Substance: RITUXIMAB
     Indication: Retroperitoneal fibrosis
  14. RITUXIMAB [Suspect]
     Active Substance: RITUXIMAB
     Indication: Anti-neutrophil cytoplasmic antibody positive vasculitis
  15. RITUXIMAB [Suspect]
     Active Substance: RITUXIMAB
     Indication: Majeed^s syndrome
  16. TOCILIZUMAB [Suspect]
     Active Substance: TOCILIZUMAB
     Indication: Juvenile idiopathic arthritis
     Route: 065
  17. TOCILIZUMAB [Suspect]
     Active Substance: TOCILIZUMAB
     Indication: Familial mediterranean fever
  18. TOCILIZUMAB [Suspect]
     Active Substance: TOCILIZUMAB
     Indication: Uveitis
  19. TOCILIZUMAB [Suspect]
     Active Substance: TOCILIZUMAB
     Indication: Behcet^s syndrome
  20. TOCILIZUMAB [Suspect]
     Active Substance: TOCILIZUMAB
     Indication: Systemic lupus erythematosus
  21. TOCILIZUMAB [Suspect]
     Active Substance: TOCILIZUMAB
     Indication: Hyper IgD syndrome
  22. TOCILIZUMAB [Suspect]
     Active Substance: TOCILIZUMAB
     Indication: Dermatomyositis
  23. TOCILIZUMAB [Suspect]
     Active Substance: TOCILIZUMAB
     Indication: Chronic infantile neurological cutaneous and articular syndrome
  24. TOCILIZUMAB [Suspect]
     Active Substance: TOCILIZUMAB
     Indication: Chronic recurrent multifocal osteomyelitis
  25. TOCILIZUMAB [Suspect]
     Active Substance: TOCILIZUMAB
     Indication: Familial cold autoinflammatory syndrome
  26. TOCILIZUMAB [Suspect]
     Active Substance: TOCILIZUMAB
     Indication: Arthritis enteropathic
  27. TOCILIZUMAB [Suspect]
     Active Substance: TOCILIZUMAB
     Indication: Polyarteritis nodosa
  28. TOCILIZUMAB [Suspect]
     Active Substance: TOCILIZUMAB
     Indication: Retroperitoneal fibrosis
  29. TOCILIZUMAB [Suspect]
     Active Substance: TOCILIZUMAB
     Indication: Anti-neutrophil cytoplasmic antibody positive vasculitis
  30. TOCILIZUMAB [Suspect]
     Active Substance: TOCILIZUMAB
     Indication: Majeed^s syndrome
  31. ETANERCEPT [Suspect]
     Active Substance: ETANERCEPT
     Indication: Juvenile idiopathic arthritis
     Route: 065
  32. ETANERCEPT [Suspect]
     Active Substance: ETANERCEPT
     Indication: Familial mediterranean fever
  33. ETANERCEPT [Suspect]
     Active Substance: ETANERCEPT
     Indication: Uveitis
  34. ETANERCEPT [Suspect]
     Active Substance: ETANERCEPT
     Indication: Behcet^s syndrome
  35. ETANERCEPT [Suspect]
     Active Substance: ETANERCEPT
     Indication: Systemic lupus erythematosus
  36. ETANERCEPT [Suspect]
     Active Substance: ETANERCEPT
     Indication: Hyper IgD syndrome
  37. ETANERCEPT [Suspect]
     Active Substance: ETANERCEPT
     Indication: Dermatomyositis
  38. ETANERCEPT [Suspect]
     Active Substance: ETANERCEPT
     Indication: Chronic infantile neurological cutaneous and articular syndrome
  39. ETANERCEPT [Suspect]
     Active Substance: ETANERCEPT
     Indication: Chronic recurrent multifocal osteomyelitis
  40. ETANERCEPT [Suspect]
     Active Substance: ETANERCEPT
     Indication: Familial cold autoinflammatory syndrome
  41. ETANERCEPT [Suspect]
     Active Substance: ETANERCEPT
     Indication: Arthritis enteropathic
  42. ETANERCEPT [Suspect]
     Active Substance: ETANERCEPT
     Indication: Polyarteritis nodosa
  43. ETANERCEPT [Suspect]
     Active Substance: ETANERCEPT
     Indication: Retroperitoneal fibrosis
  44. ETANERCEPT [Suspect]
     Active Substance: ETANERCEPT
     Indication: Anti-neutrophil cytoplasmic antibody positive vasculitis
  45. ETANERCEPT [Suspect]
     Active Substance: ETANERCEPT
     Indication: Majeed^s syndrome
  46. ANAKINRA [Suspect]
     Active Substance: ANAKINRA
     Indication: Juvenile idiopathic arthritis
     Route: 065
  47. ANAKINRA [Suspect]
     Active Substance: ANAKINRA
     Indication: Familial mediterranean fever
  48. ANAKINRA [Suspect]
     Active Substance: ANAKINRA
     Indication: Uveitis
  49. ANAKINRA [Suspect]
     Active Substance: ANAKINRA
     Indication: Behcet^s syndrome
  50. ANAKINRA [Suspect]
     Active Substance: ANAKINRA
     Indication: Systemic lupus erythematosus
  51. ANAKINRA [Suspect]
     Active Substance: ANAKINRA
     Indication: Hyper IgD syndrome
  52. ANAKINRA [Suspect]
     Active Substance: ANAKINRA
     Indication: Dermatomyositis
  53. ANAKINRA [Suspect]
     Active Substance: ANAKINRA
     Indication: Chronic infantile neurological cutaneous and articular syndrome
  54. ANAKINRA [Suspect]
     Active Substance: ANAKINRA
     Indication: Chronic recurrent multifocal osteomyelitis
  55. ANAKINRA [Suspect]
     Active Substance: ANAKINRA
     Indication: Familial cold autoinflammatory syndrome
  56. ANAKINRA [Suspect]
     Active Substance: ANAKINRA
     Indication: Arthritis enteropathic
  57. ANAKINRA [Suspect]
     Active Substance: ANAKINRA
     Indication: Polyarteritis nodosa
  58. ANAKINRA [Suspect]
     Active Substance: ANAKINRA
     Indication: Retroperitoneal fibrosis
  59. ANAKINRA [Suspect]
     Active Substance: ANAKINRA
     Indication: Anti-neutrophil cytoplasmic antibody positive vasculitis
  60. ANAKINRA [Suspect]
     Active Substance: ANAKINRA
     Indication: Majeed^s syndrome
  61. CANAKINUMAB [Suspect]
     Active Substance: CANAKINUMAB
     Indication: Juvenile idiopathic arthritis
     Route: 065
  62. CANAKINUMAB [Suspect]
     Active Substance: CANAKINUMAB
     Indication: Familial mediterranean fever
  63. CANAKINUMAB [Suspect]
     Active Substance: CANAKINUMAB
     Indication: Uveitis
  64. CANAKINUMAB [Suspect]
     Active Substance: CANAKINUMAB
     Indication: Behcet^s syndrome
  65. CANAKINUMAB [Suspect]
     Active Substance: CANAKINUMAB
     Indication: Systemic lupus erythematosus
  66. CANAKINUMAB [Suspect]
     Active Substance: CANAKINUMAB
     Indication: Hyper IgD syndrome
  67. CANAKINUMAB [Suspect]
     Active Substance: CANAKINUMAB
     Indication: Dermatomyositis
  68. CANAKINUMAB [Suspect]
     Active Substance: CANAKINUMAB
     Indication: Chronic infantile neurological cutaneous and articular syndrome
  69. CANAKINUMAB [Suspect]
     Active Substance: CANAKINUMAB
     Indication: Chronic recurrent multifocal osteomyelitis
  70. CANAKINUMAB [Suspect]
     Active Substance: CANAKINUMAB
     Indication: Familial cold autoinflammatory syndrome
  71. CANAKINUMAB [Suspect]
     Active Substance: CANAKINUMAB
     Indication: Arthritis enteropathic
  72. CANAKINUMAB [Suspect]
     Active Substance: CANAKINUMAB
     Indication: Polyarteritis nodosa
  73. CANAKINUMAB [Suspect]
     Active Substance: CANAKINUMAB
     Indication: Retroperitoneal fibrosis
  74. CANAKINUMAB [Suspect]
     Active Substance: CANAKINUMAB
     Indication: Anti-neutrophil cytoplasmic antibody positive vasculitis
  75. CANAKINUMAB [Suspect]
     Active Substance: CANAKINUMAB
     Indication: Majeed^s syndrome
  76. ADALIMUMAB [Suspect]
     Active Substance: ADALIMUMAB\ISOPROPYL ALCOHOL
     Indication: Juvenile idiopathic arthritis
     Route: 065
  77. ADALIMUMAB [Suspect]
     Active Substance: ADALIMUMAB\ISOPROPYL ALCOHOL
     Indication: Familial mediterranean fever
  78. ADALIMUMAB [Suspect]
     Active Substance: ADALIMUMAB\ISOPROPYL ALCOHOL
     Indication: Uveitis
  79. ADALIMUMAB [Suspect]
     Active Substance: ADALIMUMAB\ISOPROPYL ALCOHOL
     Indication: Behcet^s syndrome
  80. ADALIMUMAB [Suspect]
     Active Substance: ADALIMUMAB\ISOPROPYL ALCOHOL
     Indication: Systemic lupus erythematosus
  81. ADALIMUMAB [Suspect]
     Active Substance: ADALIMUMAB\ISOPROPYL ALCOHOL
     Indication: Hyper IgD syndrome
  82. ADALIMUMAB [Suspect]
     Active Substance: ADALIMUMAB\ISOPROPYL ALCOHOL
     Indication: Dermatomyositis
  83. ADALIMUMAB [Suspect]
     Active Substance: ADALIMUMAB\ISOPROPYL ALCOHOL
     Indication: Chronic infantile neurological cutaneous and articular syndrome
  84. ADALIMUMAB [Suspect]
     Active Substance: ADALIMUMAB\ISOPROPYL ALCOHOL
     Indication: Chronic recurrent multifocal osteomyelitis
  85. ADALIMUMAB [Suspect]
     Active Substance: ADALIMUMAB\ISOPROPYL ALCOHOL
     Indication: Familial cold autoinflammatory syndrome
  86. ADALIMUMAB [Suspect]
     Active Substance: ADALIMUMAB\ISOPROPYL ALCOHOL
     Indication: Arthritis enteropathic
  87. ADALIMUMAB [Suspect]
     Active Substance: ADALIMUMAB\ISOPROPYL ALCOHOL
     Indication: Polyarteritis nodosa
  88. ADALIMUMAB [Suspect]
     Active Substance: ADALIMUMAB\ISOPROPYL ALCOHOL
     Indication: Retroperitoneal fibrosis
  89. ADALIMUMAB [Suspect]
     Active Substance: ADALIMUMAB\ISOPROPYL ALCOHOL
     Indication: Anti-neutrophil cytoplasmic antibody positive vasculitis
  90. ADALIMUMAB [Suspect]
     Active Substance: ADALIMUMAB\ISOPROPYL ALCOHOL
     Indication: Majeed^s syndrome
  91. INFLIXIMAB [Suspect]
     Active Substance: INFLIXIMAB
     Indication: Juvenile idiopathic arthritis
     Route: 065
  92. INFLIXIMAB [Suspect]
     Active Substance: INFLIXIMAB
     Indication: Familial mediterranean fever
  93. INFLIXIMAB [Suspect]
     Active Substance: INFLIXIMAB
     Indication: Uveitis
  94. INFLIXIMAB [Suspect]
     Active Substance: INFLIXIMAB
     Indication: Behcet^s syndrome
  95. INFLIXIMAB [Suspect]
     Active Substance: INFLIXIMAB
     Indication: Systemic lupus erythematosus
  96. INFLIXIMAB [Suspect]
     Active Substance: INFLIXIMAB
     Indication: Hyper IgD syndrome
  97. INFLIXIMAB [Suspect]
     Active Substance: INFLIXIMAB
     Indication: Dermatomyositis
  98. INFLIXIMAB [Suspect]
     Active Substance: INFLIXIMAB
     Indication: Chronic infantile neurological cutaneous and articular syndrome
  99. INFLIXIMAB [Suspect]
     Active Substance: INFLIXIMAB
     Indication: Chronic recurrent multifocal osteomyelitis
  100. INFLIXIMAB [Suspect]
     Active Substance: INFLIXIMAB
     Indication: Familial cold autoinflammatory syndrome
  101. INFLIXIMAB [Suspect]
     Active Substance: INFLIXIMAB
     Indication: Arthritis enteropathic
  102. INFLIXIMAB [Suspect]
     Active Substance: INFLIXIMAB
     Indication: Polyarteritis nodosa
  103. INFLIXIMAB [Suspect]
     Active Substance: INFLIXIMAB
     Indication: Retroperitoneal fibrosis
  104. INFLIXIMAB [Suspect]
     Active Substance: INFLIXIMAB
     Indication: Anti-neutrophil cytoplasmic antibody positive vasculitis
  105. INFLIXIMAB [Suspect]
     Active Substance: INFLIXIMAB
     Indication: Majeed^s syndrome
  106. TOFACITINIB [Suspect]
     Active Substance: TOFACITINIB
     Indication: Juvenile idiopathic arthritis
     Route: 065
  107. TOFACITINIB [Suspect]
     Active Substance: TOFACITINIB
     Indication: Familial mediterranean fever
  108. TOFACITINIB [Suspect]
     Active Substance: TOFACITINIB
     Indication: Uveitis
  109. TOFACITINIB [Suspect]
     Active Substance: TOFACITINIB
     Indication: Behcet^s syndrome
  110. TOFACITINIB [Suspect]
     Active Substance: TOFACITINIB
     Indication: Systemic lupus erythematosus
  111. TOFACITINIB [Suspect]
     Active Substance: TOFACITINIB
     Indication: Hyper IgD syndrome
  112. TOFACITINIB [Suspect]
     Active Substance: TOFACITINIB
     Indication: Dermatomyositis
  113. TOFACITINIB [Suspect]
     Active Substance: TOFACITINIB
     Indication: Chronic infantile neurological cutaneous and articular syndrome
  114. TOFACITINIB [Suspect]
     Active Substance: TOFACITINIB
     Indication: Chronic recurrent multifocal osteomyelitis
  115. TOFACITINIB [Suspect]
     Active Substance: TOFACITINIB
     Indication: Familial cold autoinflammatory syndrome
  116. TOFACITINIB [Suspect]
     Active Substance: TOFACITINIB
     Indication: Arthritis enteropathic
  117. TOFACITINIB [Suspect]
     Active Substance: TOFACITINIB
     Indication: Polyarteritis nodosa
  118. TOFACITINIB [Suspect]
     Active Substance: TOFACITINIB
     Indication: Retroperitoneal fibrosis
  119. TOFACITINIB [Suspect]
     Active Substance: TOFACITINIB
     Indication: Anti-neutrophil cytoplasmic antibody positive vasculitis
  120. TOFACITINIB [Suspect]
     Active Substance: TOFACITINIB
     Indication: Majeed^s syndrome
  121. ABATACEPT [Suspect]
     Active Substance: ABATACEPT
     Indication: Juvenile idiopathic arthritis
     Route: 065
  122. ABATACEPT [Suspect]
     Active Substance: ABATACEPT
     Indication: Familial mediterranean fever
  123. ABATACEPT [Suspect]
     Active Substance: ABATACEPT
     Indication: Uveitis
  124. ABATACEPT [Suspect]
     Active Substance: ABATACEPT
     Indication: Behcet^s syndrome
  125. ABATACEPT [Suspect]
     Active Substance: ABATACEPT
     Indication: Systemic lupus erythematosus
  126. ABATACEPT [Suspect]
     Active Substance: ABATACEPT
     Indication: Hyper IgD syndrome
  127. ABATACEPT [Suspect]
     Active Substance: ABATACEPT
     Indication: Dermatomyositis
  128. ABATACEPT [Suspect]
     Active Substance: ABATACEPT
     Indication: Chronic infantile neurological cutaneous and articular syndrome
  129. ABATACEPT [Suspect]
     Active Substance: ABATACEPT
     Indication: Chronic recurrent multifocal osteomyelitis
  130. ABATACEPT [Suspect]
     Active Substance: ABATACEPT
     Indication: Familial cold autoinflammatory syndrome
  131. ABATACEPT [Suspect]
     Active Substance: ABATACEPT
     Indication: Arthritis enteropathic
  132. ABATACEPT [Suspect]
     Active Substance: ABATACEPT
     Indication: Polyarteritis nodosa
  133. ABATACEPT [Suspect]
     Active Substance: ABATACEPT
     Indication: Retroperitoneal fibrosis
  134. ABATACEPT [Suspect]
     Active Substance: ABATACEPT
     Indication: Anti-neutrophil cytoplasmic antibody positive vasculitis
  135. ABATACEPT [Suspect]
     Active Substance: ABATACEPT
     Indication: Majeed^s syndrome
  136. SECUKINUMAB [Suspect]
     Active Substance: SECUKINUMAB
     Indication: Juvenile idiopathic arthritis
     Route: 065
  137. SECUKINUMAB [Suspect]
     Active Substance: SECUKINUMAB
     Indication: Familial mediterranean fever
  138. SECUKINUMAB [Suspect]
     Active Substance: SECUKINUMAB
     Indication: Uveitis
  139. SECUKINUMAB [Suspect]
     Active Substance: SECUKINUMAB
     Indication: Behcet^s syndrome
  140. SECUKINUMAB [Suspect]
     Active Substance: SECUKINUMAB
     Indication: Systemic lupus erythematosus
  141. SECUKINUMAB [Suspect]
     Active Substance: SECUKINUMAB
     Indication: Hyper IgD syndrome
  142. SECUKINUMAB [Suspect]
     Active Substance: SECUKINUMAB
     Indication: Dermatomyositis
  143. SECUKINUMAB [Suspect]
     Active Substance: SECUKINUMAB
     Indication: Chronic infantile neurological cutaneous and articular syndrome
  144. SECUKINUMAB [Suspect]
     Active Substance: SECUKINUMAB
     Indication: Chronic recurrent multifocal osteomyelitis
  145. SECUKINUMAB [Suspect]
     Active Substance: SECUKINUMAB
     Indication: Familial cold autoinflammatory syndrome
  146. SECUKINUMAB [Suspect]
     Active Substance: SECUKINUMAB
     Indication: Arthritis enteropathic
  147. SECUKINUMAB [Suspect]
     Active Substance: SECUKINUMAB
     Indication: Polyarteritis nodosa
  148. SECUKINUMAB [Suspect]
     Active Substance: SECUKINUMAB
     Indication: Retroperitoneal fibrosis
  149. SECUKINUMAB [Suspect]
     Active Substance: SECUKINUMAB
     Indication: Anti-neutrophil cytoplasmic antibody positive vasculitis
  150. SECUKINUMAB [Suspect]
     Active Substance: SECUKINUMAB
     Indication: Majeed^s syndrome

REACTIONS (31)
  - Intracranial pressure increased [Unknown]
  - Upper respiratory tract infection [Unknown]
  - Urinary tract infection [Unknown]
  - COVID-19 [Unknown]
  - Pneumonia [Unknown]
  - Gingivitis [Unknown]
  - Gastroenteritis [Unknown]
  - Varicella [Unknown]
  - Paronychia [Unknown]
  - Tuberculosis [Unknown]
  - Infection [Unknown]
  - Abdominal pain [Unknown]
  - Diarrhoea [Unknown]
  - Vomiting [Unknown]
  - Nausea [Unknown]
  - Constipation [Unknown]
  - Gastrointestinal disorder [Unknown]
  - Headache [Unknown]
  - Dizziness [Unknown]
  - Liver function test increased [Unknown]
  - Neutropenia [Unknown]
  - Thrombocytopenia [Unknown]
  - Rash [Unknown]
  - Alopecia [Unknown]
  - Urticaria [Unknown]
  - Injection site reaction [Unknown]
  - Skin disorder [Unknown]
  - Cataract [Unknown]
  - Visual acuity reduced [Unknown]
  - Uveitis [Unknown]
  - Epistaxis [Unknown]
